FAERS Safety Report 26074335 (Version 1)
Quarter: 2025Q4

REPORT INFORMATION
  Report Type: Report from Study
  Country: GB (occurrence: GB)
  Receive Date: 20251121
  Receipt Date: 20251121
  Transmission Date: 20260117
  Serious: Yes (Other)
  Sender: ABBVIE
  Company Number: GB-ABBVIE-6441570

PATIENT
  Age: 75 Year
  Sex: Female

DRUGS (1)
  1. SKYRIZI [Suspect]
     Active Substance: RISANKIZUMAB-RZAA
     Indication: Psoriasis
     Dosage: 1 X SKYRIZI 150MG/1ML, INJECT ONE PRE-FILLED PEN EVERY TWELVE WEEKS, ?SOLUTION FOR INJECTION IN P...
     Route: 058
     Dates: start: 202402, end: 2025

REACTIONS (2)
  - Knee arthroplasty [Unknown]
  - Arthropathy [Unknown]

NARRATIVE: CASE EVENT DATE: 20250901
